FAERS Safety Report 22146061 (Version 1)
Quarter: 2023Q1

REPORT INFORMATION
  Report Type: Spontaneous
  Country: US (occurrence: None)
  Receive Date: 20230327
  Receipt Date: 20230327
  Transmission Date: 20230418
  Serious: Yes (Hospitalization)
  Sender: FDA-Public Use
  Company Number: None

PATIENT
  Age: 84 Year
  Sex: Male
  Weight: 113.4 kg

DRUGS (19)
  1. ABIRATERONE [Suspect]
     Active Substance: ABIRATERONE
  2. PREDNISONE [Suspect]
     Active Substance: PREDNISONE
  3. ASPIRIN [Concomitant]
     Active Substance: ASPIRIN
  4. CENTRUM SILVER [Concomitant]
  5. CILOSTAZOL [Concomitant]
  6. FLOMAX [Concomitant]
  7. GLIPIZIDE [Concomitant]
  8. LASIX [Concomitant]
  9. LOSARTAN [Concomitant]
  10. LUPRON DEPOT [Concomitant]
  11. METFORMIN [Concomitant]
  12. METOPROLOL [Concomitant]
  13. NITROSTAT [Concomitant]
  14. PEPCID AC [Concomitant]
  15. POTASSIUM [Concomitant]
  16. PROVENTIL [Concomitant]
  17. ROSUVASTATIN [Concomitant]
  18. SILDENAFIL [Concomitant]
  19. TRIAMCINOLONE [Concomitant]
     Active Substance: TRIAMCINOLONE

REACTIONS (2)
  - Cerebrovascular accident [None]
  - Therapy interrupted [None]
